FAERS Safety Report 7757072-6 (Version None)
Quarter: 2011Q3

REPORT INFORMATION
  Report Type: 
  Country: None (occurrence: None)
  Receive Date: 20110916
  Receipt Date: 20110909
  Transmission Date: 20111222
  Serious: Yes (Other)
  Sender: FDA-Public Use
  Company Number: US-US-EMD SERONO, INC.-7082200

PATIENT
  Sex: Female

DRUGS (2)
  1. REBIF [Suspect]
     Indication: MULTIPLE SCLEROSIS
     Route: 058
     Dates: start: 20110518, end: 20110701
  2. TYLENOL-500 [Concomitant]
     Indication: PREMEDICATION

REACTIONS (2)
  - INFLUENZA LIKE ILLNESS [None]
  - SURGERY [None]
